FAERS Safety Report 9608401 (Version 2)
Quarter: 2014Q1

REPORT INFORMATION
  Report Type: Spontaneous
  Country: IT (occurrence: IT)
  Receive Date: 20131009
  Receipt Date: 20140313
  Transmission Date: 20141002
  Serious: Yes (Other)
  Sender: FDA-Public Use
  Company Number: IT-RANBAXY-2013R1-73852

PATIENT
  Age: 50 Year
  Sex: Female

DRUGS (4)
  1. TOPIRAMATE [Suspect]
     Indication: CONVULSION
     Dosage: 200 MG/DAY
     Route: 065
  2. LEVETIRACETAM [Concomitant]
     Indication: CONVULSION
     Dosage: UNK
     Route: 065
  3. PHENOBARBITAL [Concomitant]
     Indication: CONVULSION
     Dosage: UNK
     Route: 065
  4. CLONAZEPAM [Concomitant]
     Indication: CONVULSION
     Dosage: UNK
     Route: 065

REACTIONS (2)
  - Vision blurred [Unknown]
  - Disorientation [Unknown]
